FAERS Safety Report 7116161-X (Version None)
Quarter: 2010Q4

REPORT INFORMATION
  Report Type: 
  Country: None (occurrence: None)
  Receive Date: 20101122
  Receipt Date: 20101110
  Transmission Date: 20110411
  Serious: Yes (Hospitalization)
  Sender: FDA-Public Use
  Company Number: PHHY2010JP50252

PATIENT
  Sex: Female
  Weight: 49 kg

DRUGS (4)
  1. FEMARA [Suspect]
     Dosage: 2.5 MG, UNK
     Route: 048
     Dates: start: 20080913, end: 20090528
  2. RADIOTHERAPY [Concomitant]
     Dosage: UNK
     Dates: start: 20080925
  3. RADIOTHERAPY [Concomitant]
     Dosage: UNK
     Dates: start: 20081105
  4. HERCEPTIN [Concomitant]
     Dosage: EVERY 3 WEEKS
     Route: 041
     Dates: start: 20090326, end: 20100113

REACTIONS (13)
  - BLOOD ALBUMIN DECREASED [None]
  - BLOOD GLUCOSE INCREASED [None]
  - COUGH [None]
  - EFFUSION [None]
  - GLYCOSYLATED HAEMOGLOBIN INCREASED [None]
  - HAEMATOCRIT DECREASED [None]
  - HAEMOGLOBIN DECREASED [None]
  - NASOPHARYNGITIS [None]
  - PERTUSSIS [None]
  - PLATELET COUNT INCREASED [None]
  - PYREXIA [None]
  - RADIATION PNEUMONITIS [None]
  - RED BLOOD CELL COUNT DECREASED [None]
